FAERS Safety Report 9944441 (Version 1)
Quarter: 2014Q1

REPORT INFORMATION
  Report Type: Report from Study
  Country: US (occurrence: US)
  Receive Date: 20140303
  Receipt Date: 20140303
  Transmission Date: 20141002
  Serious: No
  Sender: FDA-Public Use
  Company Number: US-ABBVIE-13P-163-1053745-00

PATIENT
  Age: 44 Year
  Sex: Male
  Weight: 66.74 kg

DRUGS (11)
  1. HUMIRA [Suspect]
     Indication: CROHN^S DISEASE
     Dates: start: 201210, end: 201210
  2. HUMIRA [Suspect]
     Dates: start: 201211, end: 201211
  3. HUMIRA [Suspect]
     Dates: start: 201211
  4. 6 MP [Suspect]
     Indication: CROHN^S DISEASE
     Dates: end: 201301
  5. 6 MP [Suspect]
     Dates: start: 201301, end: 201301
  6. 6 MP [Suspect]
     Dates: start: 201301
  7. ASACOL [Concomitant]
     Indication: CROHN^S DISEASE
  8. SIMVASTATIN [Concomitant]
     Indication: HYPERLIPIDAEMIA
  9. LOSARTAN [Concomitant]
     Indication: HYPERTENSION
  10. PROBIOTIC [Concomitant]
     Indication: SUPPLEMENTATION THERAPY
  11. MVI [Concomitant]
     Indication: SUPPLEMENTATION THERAPY

REACTIONS (4)
  - Acne [Not Recovered/Not Resolved]
  - Rash macular [Not Recovered/Not Resolved]
  - Drug ineffective [Recovered/Resolved]
  - Rectal haemorrhage [Recovered/Resolved]
